FAERS Safety Report 23182901 (Version 1)
Quarter: 2023Q4

REPORT INFORMATION
  Report Type: Spontaneous
  Country: US (occurrence: None)
  Receive Date: 20231114
  Receipt Date: 20231114
  Transmission Date: 20240110
  Serious: No
  Sender: FDA-Public Use
  Company Number: None

PATIENT
  Age: 24 Year
  Sex: Female
  Weight: 63 kg

DRUGS (4)
  1. REGLAN [Suspect]
     Active Substance: METOCLOPRAMIDE HYDROCHLORIDE
     Indication: Nausea
     Dosage: OTHER QUANTITY : 1 INJECTION(S);?
     Route: 042
     Dates: start: 20231112, end: 20231112
  2. METHYLPHENIDATE [Concomitant]
     Active Substance: METHYLPHENIDATE
  3. RIZATRIPTAN [Concomitant]
     Active Substance: RIZATRIPTAN
  4. ALBUTEROL [Concomitant]
     Active Substance: ALBUTEROL

REACTIONS (12)
  - Panic attack [None]
  - Anxiety [None]
  - Discomfort [None]
  - Fear [None]
  - Suicidal ideation [None]
  - Depersonalisation/derealisation disorder [None]
  - Tremor [None]
  - Feeling abnormal [None]
  - Crying [None]
  - Anxiety [None]
  - Intrusive thoughts [None]
  - Self-injurious ideation [None]

NARRATIVE: CASE EVENT DATE: 20231112
